FAERS Safety Report 8709883 (Version 4)
Quarter: 2017Q2

REPORT INFORMATION
  Report Type: Report from Study
  Country: US (occurrence: US)
  Receive Date: 20120806
  Receipt Date: 20170620
  Transmission Date: 20170830
  Serious: Yes (Hospitalization)
  Sender: FDA-Public Use
  Company Number: PHHO2012US011351

PATIENT
  Sex: Male

DRUGS (4)
  1. CARDIZEM [Concomitant]
     Active Substance: DILTIAZEM HYDROCHLORIDE
     Dosage: 30 MG, BID
  2. BEZ235 [Suspect]
     Active Substance: DACTOLISIB
     Indication: GLIOBLASTOMA MULTIFORME
     Dosage: 400 MG, UNK
     Route: 048
     Dates: start: 20120725
  3. ATENOLOL. [Suspect]
     Active Substance: ATENOLOL
     Dosage: 25 MG, QD
     Route: 048
  4. AFINITOR [Suspect]
     Active Substance: EVEROLIMUS
     Indication: GLIOBLASTOMA MULTIFORME
     Dosage: 2.5 MG, UNK
     Route: 048
     Dates: start: 20120725

REACTIONS (2)
  - Diarrhoea [Recovering/Resolving]
  - Hypotension [Recovered/Resolved]

NARRATIVE: CASE EVENT DATE: 20120730
